FAERS Safety Report 8818851 (Version 1)
Quarter: 2012Q4

REPORT INFORMATION
  Report Type: 
  Country: US (occurrence: US)
  Receive Date: 20121001
  Receipt Date: 20121001
  Transmission Date: 20130627
  Serious: Yes (Hospitalization)
  Sender: FDA-Public Use
  Company Number: US-COVIDIEN/TYCO HEALTHCARE/MALLINCKRODT-T201203532

PATIENT

DRUGS (2)
  1. EXALGO EXTENDED RELEASE [Suspect]
     Dosage: UNK
  2. OXYCODONE [Concomitant]
     Dosage: UNK

REACTIONS (1)
  - Overdose [Recovered/Resolved]
